FAERS Safety Report 12600609 (Version 1)
Quarter: 2016Q3

REPORT INFORMATION
  Report Type: Spontaneous
  Country: US (occurrence: US)
  Receive Date: 20160727
  Receipt Date: 20160727
  Transmission Date: 20161109
  Serious: Yes (Hospitalization, Other)
  Sender: FDA-Public Use
  Company Number: US-ASTRAZENECA-2016SE79254

PATIENT
  Age: 82 Year
  Sex: Female
  Weight: 90.7 kg

DRUGS (27)
  1. LATANOPROST. [Concomitant]
     Active Substance: LATANOPROST
     Indication: EYE DISORDER
     Dosage: 0.005% 1 DROP IN RIGHT EYE NIGHTLY
     Route: 047
     Dates: start: 2013
  2. XELANTAN [Concomitant]
     Indication: EYE DISORDER
     Dosage: IN RIGHT EYE
     Route: 047
     Dates: start: 201605
  3. ENALAPRIL [Concomitant]
     Active Substance: ENALAPRIL
     Indication: CARDIAC FAILURE CONGESTIVE
     Route: 048
     Dates: start: 201404
  4. PLAVIX [Concomitant]
     Active Substance: CLOPIDOGREL BISULFATE
     Indication: STENT PLACEMENT
     Route: 048
     Dates: start: 201404
  5. LIPITOR [Concomitant]
     Active Substance: ATORVASTATIN CALCIUM
     Indication: BLOOD CHOLESTEROL ABNORMAL
     Route: 048
  6. THERACRAN [Concomitant]
     Indication: CYSTITIS
     Dosage: TWICE DAILY
     Route: 048
  7. EYE CAPS-PRESERVISION AREDS NO. 2 [Concomitant]
     Indication: VITAMIN SUPPLEMENTATION
     Dosage: 1 TAB TWICE DAILY
     Route: 048
     Dates: start: 2013
  8. TIMOLOL. [Concomitant]
     Active Substance: TIMOLOL
     Indication: EYE DISORDER
     Dosage: IN LEFT EYE
     Route: 047
     Dates: start: 201605
  9. COREG [Concomitant]
     Active Substance: CARVEDILOL
     Indication: CARDIAC DISORDER
     Route: 048
     Dates: start: 201404
  10. EFFEXOR [Concomitant]
     Active Substance: VENLAFAXINE HYDROCHLORIDE
     Indication: HOT FLUSH
     Route: 048
     Dates: start: 2010
  11. LANTUS [Concomitant]
     Active Substance: INSULIN GLARGINE
     Dosage: 34 INTERNATIONAL UNITS SUBQ AT 11:00 PM NIGHTLY
     Route: 058
  12. PULMICORT FLEXHALER [Suspect]
     Active Substance: BUDESONIDE
     Indication: ASTHMA
     Dosage: 90 UG, TWO PUFFS, TWO TIMES A DAY
     Route: 055
     Dates: start: 201604, end: 201607
  13. MIRAPEX ER [Concomitant]
     Active Substance: PRAMIPEXOLE DIHYDROCHLORIDE
     Indication: PARKINSON^S DISEASE
     Route: 048
  14. CHLORATRIMITON [Concomitant]
     Indication: ANTIALLERGIC THERAPY
     Dosage: AS NEEDED FOR DECADES
     Route: 048
  15. SANTURA TRIPODIUM CHLORIDE [Concomitant]
     Indication: INCONTINENCE
     Dates: start: 2006
  16. REMERON [Concomitant]
     Active Substance: MIRTAZAPINE
     Indication: ANTIDEPRESSANT THERAPY
     Route: 048
     Dates: start: 2015
  17. TYLENOL [Concomitant]
     Active Substance: ACETAMINOPHEN
     Dosage: AS NEEDED
     Route: 048
  18. ARIMIDEX [Suspect]
     Active Substance: ANASTROZOLE
     Indication: NEOPLASM MALIGNANT
     Route: 048
     Dates: start: 2009
  19. POTASSIUM CHLORIDE. [Concomitant]
     Active Substance: POTASSIUM CHLORIDE
     Route: 048
     Dates: start: 201404
  20. VITAMIN D [Concomitant]
     Active Substance: CHOLECALCIFEROL
     Route: 048
  21. LEVADOPA [Concomitant]
     Indication: PARKINSON^S DISEASE
     Dosage: 25/100 GIVE 1??? TABS THREE TIMES DAILY
     Route: 048
     Dates: start: 2014
  22. REMERON [Concomitant]
     Active Substance: MIRTAZAPINE
     Indication: INSOMNIA
     Route: 048
     Dates: start: 2015
  23. DORZOLMIDE-TIMOLOL [Concomitant]
     Indication: EYE DISORDER
     Dosage: EYE DROPS 1 DROP IN RIGHT EYE TWICE DAILY
     Route: 047
     Dates: start: 2013
  24. ALPHAGAN P [Concomitant]
     Active Substance: BRIMONIDINE TARTRATE
     Indication: EYE DISORDER
     Dosage: 1 DROP IN RIGHT EYE DAILY
     Route: 047
     Dates: start: 201605
  25. HUMALOG [Concomitant]
     Active Substance: INSULIN LISPRO
     Dosage: 8 INTERNATIONAL UNITS SUBQ TWICE DAILY WITH BREAKFAST AND LUNCH
     Route: 058
  26. TESSALON BENZONONATE [Concomitant]
     Indication: COUGH
     Dosage: 100 MG, THREE TIMES A DAY AND ADDITIONAL 3 TIMES PER DAY AS NEEDED
     Route: 048
     Dates: start: 2015
  27. HUMALOG [Concomitant]
     Active Substance: INSULIN LISPRO
     Dosage: 10 INTERNATIONAL UNITS SUBQ WITH DINNER
     Route: 058

REACTIONS (11)
  - Breast cancer [Unknown]
  - Glaucoma [Unknown]
  - Intraocular pressure increased [Not Recovered/Not Resolved]
  - Diabetes mellitus [Unknown]
  - Intestinal obstruction [Unknown]
  - Asthma [Unknown]
  - Bladder cancer [Unknown]
  - Hypersensitivity [Not Recovered/Not Resolved]
  - Malaise [Not Recovered/Not Resolved]
  - Large intestine perforation [Unknown]
  - Parkinson^s disease [Not Recovered/Not Resolved]

NARRATIVE: CASE EVENT DATE: 2010
